FAERS Safety Report 7124112-7 (Version None)
Quarter: 2010Q4

REPORT INFORMATION
  Report Type: 
  Country: None (occurrence: None)
  Receive Date: 20101126
  Receipt Date: 20101123
  Transmission Date: 20110411
  Serious: Yes (Hospitalization)
  Sender: FDA-Public Use
  Company Number: PHHO2010PL15504

PATIENT
  Sex: Female
  Weight: 61 kg

DRUGS (14)
  1. ENALAPRIL MALEATE [Suspect]
     Indication: CARDIAC FAILURE CHRONIC
     Dosage: NO TREATMENT
     Route: 048
  2. BLINDED LCZ696 LCZ+TAB+CF [Suspect]
     Indication: CARDIAC FAILURE CHRONIC
     Dosage: NO TREATMENT
     Route: 048
  3. BLINDED NO TREATMENT RECEIVED NOMED [Suspect]
     Indication: CARDIAC FAILURE CHRONIC
     Dosage: NO TREATMENT
     Route: 048
  4. COMPARATOR ENALAPRIL [Suspect]
     Indication: CARDIAC FAILURE CHRONIC
     Dosage: UNK
     Dates: start: 20100728, end: 20100810
  5. LCZ696 [Suspect]
     Indication: CARDIAC FAILURE CHRONIC
     Dosage: UNK
     Dates: start: 20100812, end: 20100815
  6. LCZ696 [Suspect]
     Dosage: UNK
     Dates: start: 20100914, end: 20100918
  7. METOCARD [Concomitant]
  8. PIRAMIL [Concomitant]
  9. INDAPEN [Concomitant]
  10. VASILIP [Concomitant]
  11. ACETYLSALICYLIC ACID [Concomitant]
  12. SIMVASTATIN [Concomitant]
  13. METHOCARBAMOL [Concomitant]
  14. INDOPEN [Concomitant]

REACTIONS (17)
  - ABDOMINAL PAIN [None]
  - ANAEMIA [None]
  - ASTHENIA [None]
  - DECREASED APPETITE [None]
  - DEHYDRATION [None]
  - DIVERTICULITIS [None]
  - DUODENAL POLYP [None]
  - DUODENITIS [None]
  - FOOD AVERSION [None]
  - GASTRITIS [None]
  - HYPOKALAEMIA [None]
  - HYPOTONIA [None]
  - NAUSEA [None]
  - PALLOR [None]
  - POLYPECTOMY [None]
  - VOMITING [None]
  - WEIGHT DECREASED [None]
